FAERS Safety Report 7184640-5 (Version None)
Quarter: 2010Q4

REPORT INFORMATION
  Report Type: 
  Country: None (occurrence: None)
  Receive Date: 20101222
  Receipt Date: 20101123
  Transmission Date: 20110411
  Serious: Yes (Hospitalization)
  Sender: FDA-Public Use
  Company Number: GXKR2010FR13325

PATIENT
  Age: 73 Year
  Sex: Male

DRUGS (21)
  1. TRAMADOL HCL [Suspect]
     Indication: PRODUCT USED FOR UNKNOWN INDICATION
     Dosage: UNK
     Route: 048
     Dates: start: 20100930, end: 20101015
  2. DURAGESIC-100 [Suspect]
     Indication: PRODUCT USED FOR UNKNOWN INDICATION
     Dosage: 4.2 MG/10.5 CM2
     Route: 062
     Dates: start: 20101014, end: 20101014
  3. BUFLOMEDIL [Suspect]
     Dosage: UNK
     Dates: start: 20100928
  4. EFFERALGAN [Concomitant]
     Dosage: UNK
     Dates: start: 20100910, end: 20101015
  5. EFFERALGAN [Concomitant]
     Dosage: UNK
     Dates: start: 20101017
  6. ACETYLSALICYLIC ACID [Concomitant]
     Dosage: UNK
     Dates: end: 20101015
  7. ACETYLSALICYLIC ACID [Concomitant]
     Dosage: UNK
     Dates: start: 20101017
  8. ACEBUTOLOL HYDROCHLORIDE [Concomitant]
     Dosage: UNK
     Dates: end: 20101015
  9. ACEBUTOLOL HYDROCHLORIDE [Concomitant]
     Dosage: UNK
     Dates: start: 20101018
  10. BRICANYL [Concomitant]
     Dosage: UNK
     Dates: end: 20101015
  11. BRICANYL [Concomitant]
     Dosage: UNK
     Dates: start: 20101018
  12. OMEPRAZOLE [Concomitant]
     Dosage: UNK
     Dates: end: 20101015
  13. OMEPRAZOLE [Concomitant]
     Dosage: UNK
     Dates: start: 20101018, end: 20101019
  14. LYSANXIA [Concomitant]
     Dosage: UNK
     Dates: end: 20101015
  15. LYSANXIA [Concomitant]
     Dosage: UNK
     Dates: start: 20101018, end: 20101019
  16. AMLOR [Concomitant]
     Dosage: UNK
     Dates: end: 20101015
  17. SIMVASTATIN [Concomitant]
     Dosage: UNK
     Dates: end: 20101015
  18. DEROXAT [Concomitant]
     Dosage: UNK
     Dates: end: 20101015
  19. ATROVENT [Concomitant]
     Dosage: UNK
     Dates: end: 20101015
  20. ATROVENT [Concomitant]
     Dosage: UNK
     Dates: start: 20101018
  21. DULCOLAX [Concomitant]
     Dosage: UNK
     Dates: start: 20101005

REACTIONS (1)
  - VASCULAR PURPURA [None]
